FAERS Safety Report 9313293 (Version 2)
Quarter: 2013Q3

REPORT INFORMATION
  Report Type: Spontaneous
  Country: US (occurrence: US)
  Receive Date: 20130528
  Receipt Date: 20130828
  Transmission Date: 20140515
  Serious: No
  Sender: FDA-Public Use
  Company Number: US-ABBOTT-13P-163-1089996-00

PATIENT
  Sex: Male
  Weight: 102.15 kg

DRUGS (8)
  1. ANDROGEL [Suspect]
     Indication: BLOOD TESTOSTERONE DECREASED
     Dosage: 4 PUMPS DAILY
     Dates: start: 2012
  2. FLECAINIDE [Concomitant]
     Indication: ATRIAL FIBRILLATION
  3. SEROQUEL [Concomitant]
     Indication: AFFECTIVE DISORDER
  4. RAPAFLO [Concomitant]
     Indication: PROSTATIC DISORDER
  5. LIPITOR [Concomitant]
     Indication: BLOOD CHOLESTEROL
  6. LAMICTAL [Concomitant]
     Indication: AFFECTIVE DISORDER
  7. VIIBRYD [Concomitant]
     Indication: DEPRESSION
  8. PANTOPRAZOLE [Concomitant]
     Indication: GASTROOESOPHAGEAL REFLUX DISEASE

REACTIONS (1)
  - Hypoacusis [Not Recovered/Not Resolved]
